FAERS Safety Report 9671472 (Version 2)
Quarter: 2013Q4

REPORT INFORMATION
  Report Type: Spontaneous
  Country: GB (occurrence: GB)
  Receive Date: 20131106
  Receipt Date: 20131126
  Transmission Date: 20140711
  Serious: Yes (Other)
  Sender: FDA-Public Use
  Company Number: GB-TEVA-441787ISR

PATIENT
  Sex: Female

DRUGS (3)
  1. ESTRADIOL [Suspect]
     Indication: NIGHT SWEATS
  2. ESTRADIOL [Suspect]
     Indication: HOT FLUSH
  3. ANGELIQ [Suspect]
     Indication: HORMONE REPLACEMENT THERAPY
     Route: 048

REACTIONS (4)
  - Genital haemorrhage [Unknown]
  - Drug ineffective [Unknown]
  - Hot flush [Unknown]
  - Night sweats [Unknown]
